FAERS Safety Report 21734947 (Version 2)
Quarter: 2023Q1

REPORT INFORMATION
  Report Type: Report from Study
  Country: US (occurrence: None)
  Receive Date: 20221215
  Receipt Date: 20230110
  Transmission Date: 20230418
  Serious: Yes (Hospitalization)
  Sender: FDA-Public Use
  Company Number: US-ROCHE-3094660

PATIENT
  Age: 67 Year
  Sex: Female
  Weight: 73.8 kg

DRUGS (2)
  1. OBINUTUZUMAB [Suspect]
     Active Substance: OBINUTUZUMAB
     Indication: Chronic lymphocytic leukaemia
     Dosage: ON C1D1, 900 MG IV ON C1D2, 1000 MG IV ON C1D8 + C1D15, C2-6D1 ?LAST DOSE ADMINISTERED ON: 05/APR/20
     Route: 042
     Dates: start: 20220208, end: 20220628
  2. IBRUTINIB [Suspect]
     Active Substance: IBRUTINIB
     Indication: Chronic lymphocytic leukaemia
     Dosage: CYCLE=28DAYS IBRUTINIB (PCI- 32765): 420 MG POQD FOR 15CYCLES ?LAST DOSE ADMINISTERED ON: 12/APR/202
     Route: 048
     Dates: start: 20220208

REACTIONS (1)
  - Atrial fibrillation [Recovered/Resolved]

NARRATIVE: CASE EVENT DATE: 20220413
